FAERS Safety Report 5399947-1 (Version None)
Quarter: 2007Q3

REPORT INFORMATION
  Report Type: 
  Country: None (occurrence: None)
  Receive Date: 20070730
  Receipt Date: 20070719
  Transmission Date: 20080115
  Serious: Yes (Other)
  Sender: FDA-Public Use
  Company Number: US-JNJFOC-20070704959

PATIENT
  Sex: Female
  Weight: 94.35 kg

DRUGS (3)
  1. DURAGESIC-100 [Suspect]
     Indication: PAIN
     Dosage: 75UG/HR AND 25UG/HR APPLIED TOGETHER
     Route: 062
  2. LITHIUM CARBONATE [Concomitant]
     Indication: BIPOLAR DISORDER
     Route: 048
  3. DOXEPIN HCL [Concomitant]
     Indication: BIPOLAR DISORDER
     Route: 048

REACTIONS (7)
  - ASTHENIA [None]
  - BEDRIDDEN [None]
  - BREAKTHROUGH PAIN [None]
  - DRUG EFFECT DECREASED [None]
  - PAIN [None]
  - PARALYSIS [None]
  - RESTLESSNESS [None]
